FAERS Safety Report 8422122 (Version 3)
Quarter: 2014Q2

REPORT INFORMATION
  Report Type: Spontaneous
  Country: US (occurrence: US)
  Receive Date: 20120223
  Receipt Date: 20140521
  Transmission Date: 20141212
  Serious: Yes (Other)
  Sender: FDA-Public Use
  Company Number: US-PFIZER INC-2012045231

PATIENT
  Age: 46 Year
  Sex: Female

DRUGS (14)
  1. ERYTHROMYCIN [Suspect]
     Dosage: UNK
  2. MORPHINE SULFATE [Suspect]
     Dosage: UNK
  3. SKELAXIN [Suspect]
     Dosage: UNK
  4. TIGAN [Suspect]
     Dosage: UNK
  5. BENZOCAINE [Suspect]
     Dosage: UNK
  6. CODEINE [Suspect]
     Dosage: UNK
  7. ASA [Suspect]
     Dosage: UNK
  8. PERCOCET [Suspect]
     Dosage: UNK
  9. PERCODAN [Suspect]
     Dosage: UNK
  10. KEFLEX [Suspect]
     Dosage: UNK
  11. Z-PAK [Suspect]
     Dosage: UNK
  12. VICODIN [Suspect]
     Dosage: UNK
  13. NORCO [Suspect]
     Dosage: UNK
  14. SODIUM BENZOATE [Suspect]
     Dosage: UNK

REACTIONS (13)
  - Drug hypersensitivity [Unknown]
  - Convulsion [Unknown]
  - Throat tightness [Unknown]
  - Dyspnoea [Unknown]
  - Chest discomfort [Unknown]
  - Liver disorder [Unknown]
  - Swelling [Unknown]
  - Rash [Unknown]
  - Pruritus [Unknown]
  - Arthralgia [Unknown]
  - Muscular weakness [Unknown]
  - Nausea [Unknown]
  - Vomiting [Unknown]
